FAERS Safety Report 20502730 (Version 1)
Quarter: 2022Q1

REPORT INFORMATION
  Report Type: Spontaneous
  Country: US (occurrence: None)
  Receive Date: 20220220
  Receipt Date: 20220220
  Transmission Date: 20220423
  Serious: Yes (Death, Hospitalization)
  Sender: FDA-Public Use
  Company Number: None

PATIENT
  Age: 81 Year
  Sex: Male

DRUGS (7)
  1. REMDESIVIR [Suspect]
     Active Substance: REMDESIVIR
     Indication: Product used for unknown indication
  2. Carvedidol 12.5mg [Concomitant]
  3. TORSEMIDE [Concomitant]
     Active Substance: TORSEMIDE
  4. VITAMIN C [Concomitant]
     Active Substance: ASCORBIC ACID
  5. VITAMIN D3 [Concomitant]
     Active Substance: CHOLECALCIFEROL
  6. VITAMIN B12 [Concomitant]
     Active Substance: CYANOCOBALAMIN
  7. ZINC [Concomitant]
     Active Substance: ZINC

REACTIONS (3)
  - Renal failure [None]
  - Dialysis [None]
  - Product use issue [None]

NARRATIVE: CASE EVENT DATE: 20220128
